FAERS Safety Report 25444898 (Version 1)
Quarter: 2025Q2

REPORT INFORMATION
  Report Type: Spontaneous
  Country: US (occurrence: None)
  Receive Date: 20250616
  Receipt Date: 20250616
  Transmission Date: 20250717
  Serious: Yes (Hospitalization)
  Sender: FDA-CTU
  Company Number: None

PATIENT
  Age: 69 Year
  Sex: Female
  Weight: 54 kg

DRUGS (3)
  1. COLCHICINE [Suspect]
     Active Substance: COLCHICINE
     Indication: Myocarditis
     Dates: start: 20250507, end: 20250604
  2. Carvedilol Digoxin Entresto Aspirin Hormones [Concomitant]
  3. VITAMINS [Concomitant]
     Active Substance: VITAMINS

REACTIONS (10)
  - Muscular weakness [None]
  - Tremor [None]
  - Dysstasia [None]
  - Gait disturbance [None]
  - Headache [None]
  - Paraesthesia [None]
  - Fatigue [None]
  - Pain [None]
  - Body temperature decreased [None]
  - Oropharyngeal pain [None]

NARRATIVE: CASE EVENT DATE: 20250508
